FAERS Safety Report 19204014 (Version 2)
Quarter: 2021Q2

REPORT INFORMATION
  Report Type: Spontaneous
  Country: US (occurrence: US)
  Receive Date: 20210503
  Receipt Date: 20210520
  Transmission Date: 20210717
  Serious: Yes (Other)
  Sender: FDA-Public Use
  Company Number: US-AUROBINDO-AUR-APL-2021-017170

PATIENT
  Age: 54 Year
  Sex: Female

DRUGS (4)
  1. FLUOROURACIL. [Suspect]
     Active Substance: FLUOROURACIL
     Dosage: 2400 MG/M2 (BOLUS OF 5?FU (400 MG/M2) (COMPLETED TWO CYCLES)
     Route: 041
     Dates: start: 2016
  2. FOLINIC ACID [Suspect]
     Active Substance: LEUCOVORIN
     Indication: COLORECTAL CANCER STAGE III
     Dosage: 400 MG/M2 (COMPLETED TWO CYCLES)
     Route: 065
     Dates: start: 2016
  3. FLUOROURACIL. [Suspect]
     Active Substance: FLUOROURACIL
     Indication: COLORECTAL CANCER STAGE III
     Dosage: 400 MG/M2 (BOLUS OF 5?FU (COMPLETED TWO CYCLES))
     Route: 065
     Dates: start: 2016
  4. OXALIPLATIN. [Suspect]
     Active Substance: OXALIPLATIN
     Indication: COLORECTAL CANCER STAGE III
     Dosage: 85 MG/M2 (EVERY 2 WEEKS (COMPLETED TWO CYCLES))
     Route: 065
     Dates: start: 2016

REACTIONS (3)
  - Cytopenia [Unknown]
  - Toxicity to various agents [Unknown]
  - Mucosal inflammation [Unknown]
